FAERS Safety Report 9737044 (Version 3)
Quarter: 2015Q3

REPORT INFORMATION
  Report Type: Spontaneous
  Country: US (occurrence: US)
  Receive Date: 20131206
  Receipt Date: 20150804
  Transmission Date: 20151125
  Serious: No
  Sender: FDA-Public Use
  Company Number: US-GILEAD-2009-0023799

PATIENT
  Age: 78 Year
  Sex: Female

DRUGS (10)
  1. POTASSIUM [Concomitant]
     Active Substance: POTASSIUM
  2. REVATIO [Concomitant]
     Active Substance: SILDENAFIL CITRATE
  3. LETAIRIS [Suspect]
     Active Substance: AMBRISENTAN
     Indication: PULMONARY ARTERIAL HYPERTENSION
     Route: 048
     Dates: start: 20080821
  4. FUROSEMIDE. [Concomitant]
     Active Substance: FUROSEMIDE
  5. ACTIGALL [Concomitant]
     Active Substance: URSODIOL
  6. ASPIRIN. [Concomitant]
     Active Substance: ASPIRIN
  7. SYNTHROID [Concomitant]
     Active Substance: LEVOTHYROXINE SODIUM
  8. DILTIAZEM [Concomitant]
     Active Substance: DILTIAZEM
  9. GLYBURIDE. [Concomitant]
     Active Substance: GLYBURIDE
  10. SOTALOL AF [Concomitant]

REACTIONS (1)
  - Tendon pain [Not Recovered/Not Resolved]
